FAERS Safety Report 8157312-8 (Version None)
Quarter: 2012Q1

REPORT INFORMATION
  Report Type: 
  Country: None (occurrence: None)
  Receive Date: 20120222
  Receipt Date: 20120208
  Transmission Date: 20120608
  Serious: Yes (Hospitalization)
  Sender: FDA-Public Use
  Company Number: DE-ROCHE-1041031

PATIENT
  Sex: Female
  Weight: 95 kg

DRUGS (3)
  1. CARBOPLATIN [Suspect]
     Indication: OVARIAN EPITHELIAL CANCER
     Dosage: ACUTE DOSE GIVEN AT MOST RECENT ADMINSTRATION WAS ON 15/OCT/2008: AUC 5
     Route: 042
     Dates: start: 20080703
  2. AVASTIN [Suspect]
     Indication: OVARIAN EPITHELIAL CANCER
     Dosage: ACUTE DOSE GIVEN AT MOST RECENT ADMINSTRATION WAS ON 22/OCT/2008: 115 MG/KG
     Route: 042
     Dates: start: 20080723
  3. PACLITAXEL [Suspect]
     Indication: OVARIAN EPITHELIAL CANCER
     Dosage: ACUTE DOSE GIVEN AT MOST RECENT ADMINSTRATION WAS ON 15/OCT/2008: 115 MG/KG
     Route: 042
     Dates: start: 20080703

REACTIONS (1)
  - SARCOIDOSIS [None]
